FAERS Safety Report 9320765 (Version 1)
Quarter: 2013Q2

REPORT INFORMATION
  Report Type: Spontaneous
  Country: US (occurrence: US)
  Receive Date: 20130531
  Receipt Date: 20130531
  Transmission Date: 20140414
  Serious: No
  Sender: FDA-Public Use
  Company Number: US-BIOGENIDEC-2013BI048558

PATIENT
  Sex: Female

DRUGS (11)
  1. TYSABRI [Suspect]
     Indication: MULTIPLE SCLEROSIS
     Route: 042
     Dates: start: 20100902, end: 20130425
  2. MODAFINIL [Concomitant]
  3. RESTASIX [Concomitant]
  4. MIRAPEX [Concomitant]
  5. BACLOFEN [Concomitant]
  6. CYMBALTA [Concomitant]
  7. ESTRADIOL [Concomitant]
  8. ESTRING [Concomitant]
  9. VAGINAL RING [Concomitant]
  10. TOVIAZ [Concomitant]
  11. MAXZIDE-25 [Concomitant]

REACTIONS (2)
  - Fall [Recovered/Resolved]
  - Drug ineffective [Unknown]
